FAERS Safety Report 7320228-0 (Version None)
Quarter: 2011Q1

REPORT INFORMATION
  Report Type: 
  Country: None (occurrence: None)
  Receive Date: 20110228
  Receipt Date: 20110215
  Transmission Date: 20110831
  Serious: Yes (Other)
  Sender: FDA-Public Use
  Company Number: US-RB-021135-11

PATIENT
  Age: 51 Year
  Sex: Male

DRUGS (1)
  1. MUCINEX D [Suspect]
     Dosage: PATIENT TOOK SECOND DOSE A LITTLE MORE THEN 12 HOURS AFTER THE FIRST DOSE
     Route: 048

REACTIONS (7)
  - HEART RATE INCREASED [None]
  - PALPITATIONS [None]
  - DYSPNOEA [None]
  - HALLUCINATION [None]
  - RESTLESSNESS [None]
  - FEELING JITTERY [None]
  - INSOMNIA [None]
